FAERS Safety Report 9380774 (Version 2)
Quarter: 2013Q3

REPORT INFORMATION
  Report Type: Spontaneous
  Country: AU (occurrence: AU)
  Receive Date: 20130702
  Receipt Date: 20130708
  Transmission Date: 20140515
  Serious: Yes (Other)
  Sender: FDA-Public Use
  Company Number: AU-PFIZER INC-2013191825

PATIENT
  Age: 62 Year
  Sex: Female

DRUGS (4)
  1. PRISTIQ [Suspect]
     Indication: DEPRESSION
     Dosage: 200 MG, UNK
     Dates: start: 2007, end: 20130625
  2. PRISTIQ [Suspect]
     Dosage: 100 MG, UNK
     Dates: start: 20130626
  3. VALPROATE SODIUM [Concomitant]
     Indication: DEPRESSION
     Dosage: UNK
  4. SEROQUEL [Concomitant]
     Indication: DEPRESSION
     Dosage: UNK

REACTIONS (10)
  - Back disorder [Unknown]
  - Rash pruritic [Not Recovered/Not Resolved]
  - Stress [Unknown]
  - Osteoarthritis [Unknown]
  - Herpes zoster [Unknown]
  - Varicella [Unknown]
  - Immune system disorder [Unknown]
  - Depressed mood [Unknown]
  - Grief reaction [Unknown]
  - Anxiety [Unknown]
